FAERS Safety Report 22142975 (Version 2)
Quarter: 2023Q2

REPORT INFORMATION
  Report Type: Spontaneous
  Country: US (occurrence: US)
  Receive Date: 20230327
  Receipt Date: 20230405
  Transmission Date: 20230721
  Serious: Yes (Hospitalization, Other)
  Sender: FDA-Public Use
  Company Number: US-BIOVITRUM-2023-US-007438

PATIENT
  Age: 7 Year
  Sex: Female

DRUGS (1)
  1. ANAKINRA [Suspect]
     Active Substance: ANAKINRA
     Indication: Myelofibrosis
     Dosage: FREQUENCY: DAILY
     Route: 058
     Dates: start: 2018, end: 2020

REACTIONS (5)
  - Cytopenia [Unknown]
  - Cellulitis [Unknown]
  - Osteomyelitis [Unknown]
  - Off label use [Unknown]
  - Inflammatory marker increased [Unknown]
